FAERS Safety Report 5853688-2 (Version None)
Quarter: 2008Q4

REPORT INFORMATION
  Report Type: 
  Country: None (occurrence: None)
  Receive Date: 20080822
  Receipt Date: 20080811
  Transmission Date: 20090506
  Serious: Yes (Hospitalization, Other)
  Sender: FDA-Public Use
  Company Number: PHBS2008IT05411

PATIENT
  Age: 44 Year
  Sex: Male

DRUGS (11)
  1. CLOZAPINE [Suspect]
     Indication: SCHIZOPHRENIA
     Dosage: 300 MG/DAY
     Route: 065
     Dates: start: 19990101
  2. CYCLOPHOSPHAMIDE [Suspect]
     Indication: NON-HODGKIN'S LYMPHOMA
     Route: 065
  3. RITUXIMAB [Suspect]
     Indication: NON-HODGKIN'S LYMPHOMA
     Dosage: UNK
     Dates: start: 20061101
  4. CHLORAMBUCIL [Concomitant]
     Indication: NON-HODGKIN'S LYMPHOMA
     Dosage: 8 MG/DAY, 7 DAYS EVERY 5 WEEKS
     Dates: start: 20040601, end: 20050401
  5. CHLORAMBUCIL [Concomitant]
     Dosage: 8 MG/DAY, 7 DAYS EVERY 5 WEEKS
     Dates: start: 20051101
  6. HALOPERIDOL [Concomitant]
     Dosage: 15 MG/DAY
     Route: 065
  7. LORAZEPAM [Concomitant]
     Dosage: 12 MG/DAY
  8. FLUDARABINE [Concomitant]
     Indication: NON-HODGKIN'S LYMPHOMA
     Dosage: UNK
     Dates: start: 20060601
  9. MITOXANTRONE [Concomitant]
     Indication: NON-HODGKIN'S LYMPHOMA
     Dosage: UNK
     Dates: start: 20060601
  10. PREDNISONE [Suspect]
  11. VINCRISTINE [Suspect]

REACTIONS (10)
  - AGITATION [None]
  - BRONCHOPNEUMONIA [None]
  - DELUSION [None]
  - HALLUCINATION [None]
  - LEUKOPENIA [None]
  - LYMPHADENOPATHY [None]
  - NEUTROPENIA [None]
  - NON-HODGKIN'S LYMPHOMA [None]
  - NON-HODGKIN'S LYMPHOMA RECURRENT [None]
  - PSYCHOTIC DISORDER [None]
